FAERS Safety Report 12913438 (Version 2)
Quarter: 2016Q4

REPORT INFORMATION
  Report Type: Spontaneous
  Country: IT (occurrence: IT)
  Receive Date: 20161104
  Receipt Date: 20161220
  Transmission Date: 20170207
  Serious: Yes (Other)
  Sender: FDA-Public Use
  Company Number: IT-MYLANLABS-2016M1046386

PATIENT
  Age: 67 Year
  Sex: Male

DRUGS (6)
  1. PREDNISONE. [Interacting]
     Active Substance: PREDNISONE
     Indication: IMMUNOSUPPRESSION
     Dosage: UNK
  2. CICLOSPORIN [Interacting]
     Active Substance: CYCLOSPORINE
     Indication: IMMUNOSUPPRESSION
     Dosage: UNK
  3. TACROLIMUS. [Suspect]
     Active Substance: TACROLIMUS
     Indication: IMMUNOSUPPRESSION
     Dosage: UNK
  4. MYCOPHENOLATE MOFETIL. [Interacting]
     Active Substance: MYCOPHENOLATE MOFETIL
     Indication: IMMUNOSUPPRESSION
     Dosage: UNK
  5. VORICONAZOLE. [Suspect]
     Active Substance: VORICONAZOLE
     Indication: PRODUCT USED FOR UNKNOWN INDICATION
     Dosage: UNK
  6. PREDNISONE. [Interacting]
     Active Substance: PREDNISONE
     Dosage: 12.5 MG, QD

REACTIONS (8)
  - Drug intolerance [Unknown]
  - Neurotoxicity [Unknown]
  - Bronchopulmonary aspergillosis [Unknown]
  - Cytomegalovirus infection [Recovered/Resolved]
  - Drug interaction [Unknown]
  - Liver transplant rejection [Recovered/Resolved]
  - Nephropathy toxic [Unknown]
  - Hepatotoxicity [Unknown]
